FAERS Safety Report 9203860 (Version 3)
Quarter: 2013Q2

REPORT INFORMATION
  Report Type: Spontaneous
  Country: US (occurrence: US)
  Receive Date: 20130402
  Receipt Date: 20130430
  Transmission Date: 20140414
  Serious: Yes (Other)
  Sender: FDA-Public Use
  Company Number: US-PFIZER INC-2013102366

PATIENT
  Age: 68 Year
  Sex: Female
  Weight: 74.83 kg

DRUGS (23)
  1. LIPITOR [Suspect]
     Indication: BLOOD CHOLESTEROL INCREASED
     Dosage: UNK
     Route: 065
  2. PROTONIX [Suspect]
     Indication: GASTROOESOPHAGEAL REFLUX DISEASE
     Dosage: 40 MG, DAILY
     Route: 065
     Dates: start: 2010
  3. ZOCOR [Suspect]
     Indication: BLOOD CHOLESTEROL INCREASED
     Dosage: UNK
  4. MEVACOR [Suspect]
     Indication: BLOOD CHOLESTEROL INCREASED
     Dosage: UNK
  5. LESCOL [Suspect]
     Indication: BLOOD CHOLESTEROL INCREASED
     Dosage: UNK
  6. ALBUTEROL [Concomitant]
     Indication: ASTHMA
     Dosage: 2 PUFFS 4 TIMES A DAY
  7. LORAZEPAM [Concomitant]
     Indication: ANXIETY
     Dosage: 1 MG, 3X/DAY
  8. METOPROLOL [Concomitant]
     Indication: BLOOD PRESSURE ABNORMAL
     Dosage: 50 MG, 2X/DAY
  9. CYMBALTA [Concomitant]
     Indication: DEPRESSION
     Dosage: 60 MG, DAILY
  10. CYMBALTA [Concomitant]
     Indication: NEUROPATHY PERIPHERAL
  11. ASPIRIN [Concomitant]
     Indication: ANTICOAGULANT THERAPY
     Dosage: 81 MG, 1X/DAY
  12. HYDROCHLOROTHIAZIDE WITH TRIAMTERENE [Concomitant]
     Indication: BLOOD PRESSURE ABNORMAL
     Dosage: TRIAMTERENE 37.5 MG/HYDROCHLOROTHIAZIDE 25 MG DAILY
  13. HYDROCHLOROTHIAZIDE WITH TRIAMTERENE [Concomitant]
     Indication: POLYURIA
  14. LEVOTHYROXINE [Concomitant]
     Indication: HYPOTHYROIDISM
     Dosage: 50 UG, 1X/DAY
  15. LOTRISONE [Concomitant]
     Indication: RADIATION SKIN INJURY
     Dosage: UNK, 2X/DAY
  16. LOTRISONE [Concomitant]
     Indication: FUNGAL INFECTION
  17. PREMARIN [Concomitant]
     Indication: SKIN DISORDER
     Dosage: UNK, 1X/DAY
  18. AMITRIPTYLINE [Concomitant]
     Indication: DEPRESSION
     Dosage: 50 MG, DAILY
  19. AMITRIPTYLINE [Concomitant]
     Indication: SLEEP DISORDER
  20. FISH OIL [Concomitant]
     Indication: ROUTINE HEALTH MAINTENANCE
     Dosage: 4 G, UNK
  21. VITAMIN D [Concomitant]
     Dosage: 5000 IU, 1X/DAY
  22. VITAMIN E [Concomitant]
     Dosage: 1000 IU, 4X/DAY
  23. VITAMIN B12 COMPLEX [Concomitant]
     Dosage: UNK, 1X/DAY

REACTIONS (2)
  - Retinal degeneration [Not Recovered/Not Resolved]
  - Arthralgia [Unknown]
